FAERS Safety Report 8236445-1 (Version None)
Quarter: 2012Q1

REPORT INFORMATION
  Report Type: 
  Country: None (occurrence: None)
  Receive Date: 20120327
  Receipt Date: 20120321
  Transmission Date: 20120608
  Serious: Yes (Other)
  Sender: FDA-Public Use
  Company Number: CA-TEVA-325387USA

PATIENT
  Sex: Female

DRUGS (13)
  1. OXYCODONE HYDROCHLORIDE [Concomitant]
  2. PRIMROSE OIL [Concomitant]
  3. GLUCOSAMINE [Concomitant]
  4. FLAVOXATE HYDROCHLORIDE [Concomitant]
  5. NITROPUROTOIN [Concomitant]
  6. CALCIUM CARBONATE [Concomitant]
  7. CITALOPRAM HYDROBROMIDE [Concomitant]
  8. ZOPICLONE [Concomitant]
  9. COPAXONE [Suspect]
     Indication: MULTIPLE SCLEROSIS
     Route: 058
     Dates: start: 20001013
  10. GABAPENTIN [Concomitant]
  11. CELECOXIB [Concomitant]
  12. ERGOCALCIFEROL [Concomitant]
  13. ALPRAZOLAM [Concomitant]

REACTIONS (1)
  - SUICIDAL IDEATION [None]
